FAERS Safety Report 13001807 (Version 3)
Quarter: 2017Q1

REPORT INFORMATION
  Report Type: Spontaneous
  Country: FR (occurrence: FR)
  Receive Date: 20161206
  Receipt Date: 20170126
  Transmission Date: 20170428
  Serious: Yes (Life-Threatening, Hospitalization)
  Sender: FDA-Public Use
  Company Number: FR-AMGEN-FRASP2016168920

PATIENT
  Age: 72 Year
  Sex: Male

DRUGS (8)
  1. OXYCONTIN [Concomitant]
     Active Substance: OXYCODONE HYDROCHLORIDE
     Dosage: 10 MG, UNK
  2. DECAPEPTYL [Concomitant]
     Active Substance: TRIPTORELIN
     Dosage: UNK
  3. TEMESTA [Concomitant]
     Active Substance: LORAZEPAM
     Dosage: UNK
  4. SOLUPRE [Concomitant]
     Dosage: UNK
  5. XGEVA [Suspect]
     Active Substance: DENOSUMAB
     Indication: METASTASES TO BONE
     Dosage: UNK
     Route: 058
     Dates: start: 201608, end: 201610
  6. TRANSIPEG [Concomitant]
     Active Substance: POLYETHYLENE GLYCOL 3350
     Dosage: UNK
  7. SPECIAFOLDINE [Concomitant]
     Active Substance: FOLIC ACID
     Dosage: UNK
  8. VECTIBIX [Concomitant]
     Active Substance: PANITUMUMAB
     Dosage: UNK

REACTIONS (3)
  - Cardiac failure [Recovering/Resolving]
  - Arrhythmia [Recovering/Resolving]
  - Hypocalcaemia [Recovered/Resolved]

NARRATIVE: CASE EVENT DATE: 20161104
